FAERS Safety Report 11240125 (Version 2)
Quarter: 2015Q3

REPORT INFORMATION
  Report Type: Spontaneous
  Country: US (occurrence: US)
  Receive Date: 20150706
  Receipt Date: 20150713
  Transmission Date: 20151125
  Serious: No
  Sender: FDA-Public Use
  Company Number: US-ELI_LILLY_AND_COMPANY-US201507000664

PATIENT
  Sex: Female
  Weight: 74.38 kg

DRUGS (1)
  1. HUMALOG [Suspect]
     Active Substance: INSULIN LISPRO
     Indication: PRODUCT USED FOR UNKNOWN INDICATION
     Dosage: 200 U, PRN
     Route: 058

REACTIONS (6)
  - Infusion site pain [Unknown]
  - Blood glucose increased [Unknown]
  - Urticaria [Unknown]
  - Injection site rash [Unknown]
  - Infusion site rash [Unknown]
  - Drug hypersensitivity [Unknown]

NARRATIVE: CASE EVENT DATE: 201506
